FAERS Safety Report 5199963-9 (Version None)
Quarter: 2007Q1

REPORT INFORMATION
  Report Type: 
  Country: None (occurrence: None)
  Receive Date: 20070105
  Receipt Date: 20061222
  Transmission Date: 20070707
  Serious: Yes (Other)
  Sender: FDA-Public Use
  Company Number: DE-ROCHE-445036

PATIENT
  Age: 23 Year
  Sex: Male

DRUGS (1)
  1. VALCYTE [Suspect]
     Route: 048
     Dates: start: 20050107

REACTIONS (2)
  - GENERAL PHYSICAL HEALTH DETERIORATION [None]
  - PNEUMONIA [None]
